FAERS Safety Report 24582754 (Version 1)
Quarter: 2024Q4

REPORT INFORMATION
  Report Type: Spontaneous
  Country: CA (occurrence: CA)
  Receive Date: 20241106
  Receipt Date: 20241106
  Transmission Date: 20250115
  Serious: Yes (Other)
  Sender: JOHNSON AND JOHNSON
  Company Number: CA-JNJFOC-20241101766

PATIENT
  Age: 13 Year
  Sex: Female

DRUGS (5)
  1. REMICADE [Suspect]
     Active Substance: INFLIXIMAB
     Indication: Colitis
     Route: 041
  2. BOS TAURUS ADRENAL CORTEX CORTICOSTEROIDS [Suspect]
     Active Substance: BOS TAURUS ADRENAL CORTEX CORTICOSTEROIDS
     Indication: Colitis
     Route: 042
  3. BOS TAURUS ADRENAL CORTEX CORTICOSTEROIDS [Suspect]
     Active Substance: BOS TAURUS ADRENAL CORTEX CORTICOSTEROIDS
     Indication: Colitis
     Route: 065
  4. TOFACITINIB [Suspect]
     Active Substance: TOFACITINIB
     Indication: Colitis
     Route: 065
  5. TRUXIMA [Suspect]
     Active Substance: RITUXIMAB-ABBS
     Indication: Epstein-Barr virus infection
     Route: 042

REACTIONS (3)
  - Epstein-Barr viraemia [Recovered/Resolved]
  - Therapeutic response decreased [Unknown]
  - Intentional product use issue [Unknown]
